FAERS Safety Report 7843537-5 (Version None)
Quarter: 2011Q4

REPORT INFORMATION
  Report Type: 
  Country: None (occurrence: None)
  Receive Date: 20111025
  Receipt Date: 20111020
  Transmission Date: 20120403
  Serious: Yes (Other)
  Sender: FDA-Public Use
  Company Number: US-ROCHE-778610

PATIENT
  Sex: Female
  Weight: 45.4 kg

DRUGS (1)
  1. ACCUTANE [Suspect]
     Indication: ACNE
     Route: 065
     Dates: start: 19900101, end: 19930101

REACTIONS (4)
  - HAEMORRHOIDS [None]
  - CROHN'S DISEASE [None]
  - COLITIS ULCERATIVE [None]
  - DEPRESSION [None]
